FAERS Safety Report 25342652 (Version 1)
Quarter: 2025Q2

REPORT INFORMATION
  Report Type: Report from Study
  Country: CA (occurrence: CA)
  Receive Date: 20250521
  Receipt Date: 20250521
  Transmission Date: 20250716
  Serious: No
  Sender: SANDOZ
  Company Number: CA-002147023-NVSC2023CA069528

PATIENT
  Sex: Female

DRUGS (2)
  1. HYRIMOZ [Suspect]
     Active Substance: ADALIMUMAB-ADAZ
     Indication: Psoriatic arthropathy
     Dosage: 40MG EVERY OTHER WEEK;BIWEEKLY
     Route: 058
     Dates: start: 20230304
  2. METHOTREXATE [Concomitant]
     Active Substance: METHOTREXATE
     Indication: Product used for unknown indication
     Route: 065

REACTIONS (9)
  - Pain [Unknown]
  - Neck pain [Unknown]
  - Fatigue [Unknown]
  - Memory impairment [Unknown]
  - Inflammatory marker increased [Unknown]
  - Arthralgia [Unknown]
  - Agitation [Unknown]
  - Injection site pain [Unknown]
  - Off label use [Unknown]
